FAERS Safety Report 5114521-X (Version None)
Quarter: 2006Q3

REPORT INFORMATION
  Report Type: 
  Country: None (occurrence: None)
  Receive Date: 20060921
  Receipt Date: 20060905
  Transmission Date: 20061208
  Serious: Yes (Other)
  Sender: FDA-Public Use
  Company Number: TRP_0866_2006

PATIENT
  Age: 52 Year
  Sex: Female

DRUGS (2)
  1. RIBASPHERE [Suspect]
     Indication: HEPATITIS C
     Dosage: 1200 MG QDAY PO
     Route: 048
     Dates: start: 20060725, end: 20060801
  2. PEGASYS [Suspect]
     Indication: HEPATITIS C
     Dosage: 180 MCG QWK SC
     Route: 058
     Dates: start: 20060725, end: 20060801

REACTIONS (10)
  - ALOPECIA [None]
  - ANORECTAL DISORDER [None]
  - DECREASED APPETITE [None]
  - DIARRHOEA [None]
  - HOMICIDAL IDEATION [None]
  - NAUSEA [None]
  - POLLAKIURIA [None]
  - SUICIDAL IDEATION [None]
  - URINE ODOUR ABNORMAL [None]
  - VAGINAL DISORDER [None]
